FAERS Safety Report 16383502 (Version 1)
Quarter: 2019Q2

REPORT INFORMATION
  Report Type: Spontaneous
  Country: US (occurrence: US)
  Receive Date: 20190603
  Receipt Date: 20190603
  Transmission Date: 20190711
  Serious: Yes (Life-Threatening)
  Sender: FDA-Public Use
  Company Number: US-PFIZER INC-2019232376

PATIENT
  Age: 46 Year
  Sex: Male
  Weight: 108.41 kg

DRUGS (5)
  1. SIROLIMUS. [Suspect]
     Active Substance: SIROLIMUS
     Dosage: UNK
     Dates: start: 201503
  2. SIROLIMUS. [Suspect]
     Active Substance: SIROLIMUS
     Indication: STENT PLACEMENT
     Dosage: UNK
     Dates: start: 2014
  3. SIROLIMUS. [Suspect]
     Active Substance: SIROLIMUS
     Dosage: UNK
     Dates: start: 201703
  4. METHOTREXATE SODIUM. [Suspect]
     Active Substance: METHOTREXATE SODIUM
     Dosage: UNK
  5. EVEROLIMUS. [Suspect]
     Active Substance: EVEROLIMUS
     Indication: STENT PLACEMENT
     Dosage: UNK
     Dates: start: 201511

REACTIONS (3)
  - Drug hypersensitivity [Unknown]
  - Product use in unapproved indication [Unknown]
  - Off label use [Unknown]
